FAERS Safety Report 9271532 (Version 5)
Quarter: 2013Q4

REPORT INFORMATION
  Report Type: Spontaneous
  Country: JP (occurrence: JP)
  Receive Date: 20130506
  Receipt Date: 20131216
  Transmission Date: 20140711
  Serious: Yes (Death, Life-Threatening, Hospitalization)
  Sender: FDA-Public Use
  Company Number: JP-JNJFOC-20130417710

PATIENT
  Age: 39 Year
  Sex: Male
  Weight: 80 kg

DRUGS (12)
  1. REMICADE [Suspect]
     Indication: PUSTULAR PSORIASIS
     Dosage: 1ST DOSE
     Route: 042
     Dates: start: 20121227
  2. REMICADE [Suspect]
     Indication: PUSTULAR PSORIASIS
     Dosage: SECOND DOSE
     Route: 042
     Dates: start: 20130109
  3. METHOTREXATE [Suspect]
     Indication: PSORIASIS
     Route: 048
     Dates: start: 20121213
  4. PREDONINE [Suspect]
     Indication: PSORIASIS
     Route: 048
     Dates: start: 201202, end: 20121104
  5. PREDNISOLONE [Suspect]
     Indication: PSORIASIS
     Route: 048
     Dates: start: 20121105
  6. FAMOTIDINE [Concomitant]
     Indication: PSORIASIS
     Route: 048
     Dates: start: 20121115
  7. DERMOVATE [Concomitant]
     Indication: PSORIASIS
     Route: 065
     Dates: start: 20121115
  8. TIGASON [Concomitant]
     Indication: PSORIASIS
     Route: 048
     Dates: start: 20121205
  9. FOLIAMIN [Concomitant]
     Route: 048
     Dates: start: 20121213
  10. ISCOTIN [Concomitant]
     Indication: ANTIBIOTIC PROPHYLAXIS
     Route: 048
     Dates: start: 20121213
  11. PYDOXAL [Concomitant]
     Indication: ANTIBIOTIC PROPHYLAXIS
     Route: 048
     Dates: start: 20121213
  12. MICONAZOLE NITRATE [Concomitant]
     Indication: ORAL CANDIDIASIS
     Route: 048
     Dates: start: 20130109

REACTIONS (8)
  - Pneumonia [Recovering/Resolving]
  - Meningitis cryptococcal [Recovering/Resolving]
  - Sepsis [Fatal]
  - Brain abscess [Fatal]
  - Renal impairment [Unknown]
  - Infusion site phlebitis [Unknown]
  - Muscular weakness [Unknown]
  - Hyperkalaemia [Unknown]
